FAERS Safety Report 17565022 (Version 1)
Quarter: 2020Q1

REPORT INFORMATION
  Report Type: Spontaneous
  Country: PL (occurrence: PL)
  Receive Date: 20200320
  Receipt Date: 20200320
  Transmission Date: 20200409
  Serious: Yes (Other)
  Sender: FDA-Public Use
  Company Number: PL-ROCHE-2565924

PATIENT
  Age: 32 Year
  Sex: Female
  Weight: 57 kg

DRUGS (4)
  1. PYRALGINUM [Concomitant]
     Active Substance: METAMIZOLE SODIUM
     Indication: PYREXIA
     Dosage: FREQUENCY TIME: ONCE
     Route: 048
     Dates: start: 20200211, end: 20200211
  2. TAMIFLU [Suspect]
     Active Substance: OSELTAMIVIR PHOSPHATE
     Indication: INFLUENZA
     Dosage: FREQUENCY TIME: EVERY 12 HOURS
     Route: 048
     Dates: start: 20200211, end: 20200215
  3. DESOGESTREL AND ETHINYL ESTRADIOL [Concomitant]
     Active Substance: DESOGESTREL\ETHINYL ESTRADIOL
     Route: 048
     Dates: start: 20200124, end: 20200213
  4. IBUPROFEN. [Concomitant]
     Active Substance: IBUPROFEN
     Indication: PYREXIA
     Dosage: FREQUENCY TIME: 2 TABLETS ONCE
     Route: 048
     Dates: start: 20200211, end: 20200211

REACTIONS (3)
  - Faeces pale [Recovered/Resolved]
  - Chromaturia [Recovered/Resolved]
  - Hepatic pain [Recovered/Resolved]

NARRATIVE: CASE EVENT DATE: 20200214
